FAERS Safety Report 14667161 (Version 1)
Quarter: 2018Q1

REPORT INFORMATION
  Report Type: Spontaneous
  Country: US (occurrence: US)
  Receive Date: 20180322
  Receipt Date: 20180322
  Transmission Date: 20180509
  Serious: Yes (Other)
  Sender: FDA-Public Use
  Company Number: US-ASTRAZENECA-2018SE34233

PATIENT
  Age: 80 Year
  Sex: Male

DRUGS (1)
  1. CALQUENCE [Suspect]
     Active Substance: ACALABRUTINIB
     Indication: LYMPHOMA
     Route: 048
     Dates: start: 201712, end: 201801

REACTIONS (3)
  - Fall [Unknown]
  - Head injury [Unknown]
  - Intracranial haematoma [Unknown]
